FAERS Safety Report 5746942-6 (Version None)
Quarter: 2008Q2

REPORT INFORMATION
  Report Type: 
  Country: None (occurrence: None)
  Receive Date: 20080522
  Receipt Date: 20080519
  Transmission Date: 20081010
  Serious: Yes (Other)
  Sender: FDA-Public Use
  Company Number: US-ASTRAZENECA-2008UW10202

PATIENT
  Age: 67 Year
  Sex: Female
  Weight: 58.1 kg

DRUGS (3)
  1. CRESTOR [Suspect]
     Indication: HYPERCHOLESTEROLAEMIA
     Route: 048
     Dates: end: 20080401
  2. ATENOLOL [Concomitant]
     Route: 048
  3. URICED [Concomitant]

REACTIONS (3)
  - BLADDER SPASM [None]
  - HAEMATURIA [None]
  - MUSCLE TWITCHING [None]
